FAERS Safety Report 13845349 (Version 1)
Quarter: 2017Q3

REPORT INFORMATION
  Report Type: Spontaneous
  Country: IN (occurrence: IN)
  Receive Date: 20170808
  Receipt Date: 20170808
  Transmission Date: 20171127
  Serious: Yes (Other)
  Sender: FDA-Public Use
  Company Number: IN-IMPAX LABORATORIES, INC-2017-IPXL-02333

PATIENT
  Age: 32 Year
  Sex: Female

DRUGS (1)
  1. CHLOROQUINE PHOSPHATE. [Suspect]
     Active Substance: CHLOROQUINE PHOSPHATE
     Indication: MALARIA
     Dosage: UNK
     Route: 065

REACTIONS (4)
  - Paranoia [Recovering/Resolving]
  - Depressed mood [Recovering/Resolving]
  - Psychomotor retardation [Recovering/Resolving]
  - Suicidal ideation [Recovering/Resolving]
